FAERS Safety Report 10700856 (Version 1)
Quarter: 2015Q1

REPORT INFORMATION
  Report Type: Spontaneous
  Country: US (occurrence: None)
  Receive Date: 20150108
  Receipt Date: 20150108
  Transmission Date: 20150721
  Serious: No
  Sender: FDA-Public Use
  Company Number: None

PATIENT
  Age: 77 Year
  Sex: Female
  Weight: 40.82 kg

DRUGS (4)
  1. LINZESS [Suspect]
     Active Substance: LINACLOTIDE
     Indication: IRRITABLE BOWEL SYNDROME
     Dosage: 1 CAPS IN AM BY MOUTH.
     Dates: start: 20140612, end: 20140619
  2. CLONAZEPAM. [Concomitant]
     Active Substance: CLONAZEPAM
  3. REFRESH ALLERGAN PRESERVATIVE FREE EYE DROPS [Concomitant]
  4. VITAMIN D [Concomitant]
     Active Substance: CHOLECALCIFEROL

REACTIONS (2)
  - Abdominal distension [None]
  - Muscle spasms [None]

NARRATIVE: CASE EVENT DATE: 20140619
